FAERS Safety Report 21075374 (Version 1)
Quarter: 2022Q3

REPORT INFORMATION
  Report Type: Spontaneous
  Country: CN (occurrence: CN)
  Receive Date: 20220713
  Receipt Date: 20220713
  Transmission Date: 20221027
  Serious: Yes (Other)
  Sender: FDA-Public Use
  Company Number: None

PATIENT
  Age: 49 Year
  Sex: Female
  Weight: 60 kg

DRUGS (9)
  1. CYCLOPHOSPHAMIDE [Suspect]
     Active Substance: CYCLOPHOSPHAMIDE
     Indication: Breast cancer female
     Dosage: UNK, 1-2 CYCLES OF CHEMOTHERAPY
     Route: 042
  2. CYCLOPHOSPHAMIDE [Suspect]
     Active Substance: CYCLOPHOSPHAMIDE
     Dosage: 840.000000MG ONCE DAILY,3RD CHEMOTHERAPY, POWDER INJECTION,ENDOXAN CTX 840 MG + NS 45ML
     Route: 042
     Dates: start: 20220419, end: 20220419
  3. SODIUM CHLORIDE [Suspect]
     Active Substance: SODIUM CHLORIDE
     Indication: Medication dilution
     Dosage: 1-2 CYCLES OF CHEMOTHERAPY,ENDOXAN CTX + NS
     Route: 042
  4. SODIUM CHLORIDE [Suspect]
     Active Substance: SODIUM CHLORIDE
     Dosage: 45 ML, QD,3RD CHEMOTHERAPY,ENDOXAN CTX 840 MG + NS 45ML
     Route: 042
     Dates: start: 20220419, end: 20220419
  5. SODIUM CHLORIDE [Suspect]
     Active Substance: SODIUM CHLORIDE
     Dosage: 1-2 CYCLES OF CHEMOTHERAPY,DOCETAXEL INJECTION (TAXOTERE) + NS
     Route: 041
  6. SODIUM CHLORIDE [Suspect]
     Active Substance: SODIUM CHLORIDE
     Dosage: 250 ML,QD,3RD CHEMOTHERAPY,DOCETAXEL INJECTION (TAXOTERE) 113 MG + NS 250ML
     Route: 041
     Dates: start: 20220419, end: 20220419
  7. TAXOTERE [Suspect]
     Active Substance: DOCETAXEL
     Indication: Breast cancer female
     Dosage: UNK, 1-2 CYCLES OF CHEMOTHERAPY
     Route: 041
  8. TAXOTERE [Suspect]
     Active Substance: DOCETAXEL
     Dosage: 113.000000MG ONCE DAILY,3RD CHEMOTHERAPY,DOCETAXEL INJECTION (TAXOTERE) 113 MG + NS 250ML
     Route: 041
     Dates: start: 20220419, end: 20220419
  9. Jin you li [Concomitant]
     Indication: Product used for unknown indication
     Dosage: 3 MG, ON THE SECOND DAY
     Route: 058

REACTIONS (2)
  - White blood cell count decreased [Recovering/Resolving]
  - Agranulocytosis [Recovering/Resolving]

NARRATIVE: CASE EVENT DATE: 20220424
